FAERS Safety Report 7583440-1 (Version None)
Quarter: 2011Q2

REPORT INFORMATION
  Report Type: 
  Country: None (occurrence: None)
  Receive Date: 20110623
  Receipt Date: 20110616
  Transmission Date: 20111010
  Serious: Yes (Hospitalization)
  Sender: FDA-Public Use
  Company Number: 1000020876

PATIENT
  Sex: Female
  Weight: 113.4 kg

DRUGS (5)
  1. SAVELLA [Suspect]
     Dosage: 100 MG (50 MG, 2 IN 1 D), ORAL
     Route: 048
     Dates: start: 20101201, end: 20110201
  2. ZOCOR [Concomitant]
  3. SAVELLA [Suspect]
     Dosage: 12.5 MG 912.5 MG, 1 IN 1 D), ORAL; 25 MG (12.5 MG, 2 IN 1 D), ORAL; 50 MG (25 MG, 2 IN 1 D), ORAL
     Route: 049
     Dates: start: 20101101, end: 20101201
  4. SAVELLA [Suspect]
     Dosage: 12.5 MG 912.5 MG, 1 IN 1 D), ORAL; 25 MG (12.5 MG, 2 IN 1 D), ORAL; 50 MG (25 MG, 2 IN 1 D), ORAL
     Route: 049
     Dates: start: 20101101, end: 20101101
  5. SAVELLA [Suspect]
     Dosage: 12.5 MG 912.5 MG, 1 IN 1 D), ORAL; 25 MG (12.5 MG, 2 IN 1 D), ORAL; 50 MG (25 MG, 2 IN 1 D), ORAL
     Route: 049
     Dates: start: 20101101, end: 20101101

REACTIONS (3)
  - COLITIS ULCERATIVE [None]
  - HEPATITIS [None]
  - GASTROENTERITIS [None]
